FAERS Safety Report 4522075-1 (Version None)
Quarter: 2004Q4

REPORT INFORMATION
  Report Type: 
  Country: None (occurrence: None)
  Receive Date: 20041206
  Receipt Date: 20041124
  Transmission Date: 20050328
  Serious: Yes (Hospitalization)
  Sender: FDA-Public Use
  Company Number: 2003159050DE

PATIENT
  Age: 53 Year
  Sex: Female
  Weight: 53.5 kg

DRUGS (1)
  1. CABERGOLINE [Suspect]
     Indication: RESTLESS LEGS SYNDROME
     Dosage: 3 MG, ORAL
     Route: 048
     Dates: start: 20030219

REACTIONS (2)
  - ANGINA PECTORIS [None]
  - DYSPNOEA EXERTIONAL [None]
